FAERS Safety Report 23811893 (Version 1)
Quarter: 2024Q2

REPORT INFORMATION
  Report Type: Spontaneous
  Country: IS (occurrence: IS)
  Receive Date: 20240503
  Receipt Date: 20240503
  Transmission Date: 20240716
  Serious: Yes (Hospitalization, Other)
  Sender: FDA-Public Use
  Company Number: IS-BRISTOL-MYERS SQUIBB COMPANY-2024-063568

PATIENT
  Age: 73 Year
  Sex: Male

DRUGS (2)
  1. NIVOLUMAB [Suspect]
     Active Substance: NIVOLUMAB
     Indication: Malignant melanoma
     Dosage: DOSE : 3;     FREQ : UNAVAILABLE; 3 CYCLES OF NIVOLUMAB + IPILIMUMAB
     Dates: start: 202401
  2. IPILIMUMAB [Suspect]
     Active Substance: IPILIMUMAB
     Indication: Malignant melanoma
     Dosage: DOSE : 3;     FREQ : UNAVAILABLE; 3 CYCLES OF NIVOLUMAB + IPILIMUMAB
     Dates: start: 202401

REACTIONS (9)
  - Immune-mediated hypophysitis [Unknown]
  - Acute kidney injury [Unknown]
  - Tumour pseudoprogression [Unknown]
  - Intervertebral disc degeneration [Unknown]
  - Degenerative bone disease [Unknown]
  - Muscular weakness [Unknown]
  - Peroneal nerve palsy [Unknown]
  - Balance disorder [Unknown]
  - Colitis ulcerative [Unknown]
